FAERS Safety Report 9384298 (Version 2)
Quarter: 2013Q3

REPORT INFORMATION
  Report Type: Spontaneous
  Country: JP (occurrence: JP)
  Receive Date: 20130705
  Receipt Date: 20130815
  Transmission Date: 20140515
  Serious: Yes (Other)
  Sender: FDA-Public Use
  Company Number: PHHY2013JP069919

PATIENT
  Sex: Male

DRUGS (6)
  1. DIOVAN [Suspect]
     Dosage: UNK UKN, UNK
     Route: 064
  2. NICARDIPINE [Suspect]
     Dosage: UNK UKN, UNK
     Route: 064
  3. METHYLDOPA [Suspect]
     Dosage: UNK UKN, UNK
     Route: 064
  4. LABETALOL [Suspect]
     Dosage: UNK UKN, UNK
     Route: 064
  5. NIFEDIPINE [Suspect]
     Dosage: UNK UKN, UNK
     Route: 064
  6. TANATRIL [Suspect]
     Indication: HYPERTENSION
     Dosage: UNK UKN, UNK
     Route: 064

REACTIONS (3)
  - Low birth weight baby [Unknown]
  - Premature baby [Unknown]
  - Foetal exposure during pregnancy [Unknown]
